FAERS Safety Report 6375592-6 (Version None)
Quarter: 2009Q3

REPORT INFORMATION
  Report Type: 
  Country: None (occurrence: None)
  Receive Date: 20090921
  Receipt Date: 20090908
  Transmission Date: 20100115
  Serious: Yes (Other)
  Sender: FDA-Public Use
  Company Number: 2009AP003661

PATIENT
  Age: 38 Year
  Sex: Female

DRUGS (6)
  1. CARBAMAZEPINE [Suspect]
     Indication: EPILEPSY
     Dosage: 400 MG;BID;PO
     Route: 048
     Dates: start: 20090618
  2. IBUPROFEN [Concomitant]
  3. ETHINYL ESTRADIOL W/  NORGESTREL [Concomitant]
  4. CARBAMAZEPINE [Concomitant]
  5. VALPROATE SEMISODICJM [Concomitant]
  6. LAMOTRIGINE [Concomitant]

REACTIONS (4)
  - DRUG INEFFECTIVE [None]
  - FEELING ABNORMAL [None]
  - PETIT MAL EPILEPSY [None]
  - SLEEP DISORDER [None]
